FAERS Safety Report 13994845 (Version 4)
Quarter: 2018Q4

REPORT INFORMATION
  Report Type: Report from Study
  Country: JP (occurrence: JP)
  Receive Date: 20170921
  Receipt Date: 20181011
  Transmission Date: 20190204
  Serious: Yes (Other)
  Sender: FDA-Public Use
  Company Number: JP-ALXN-A201706900AA

PATIENT
  Age: 45 Year
  Sex: Male
  Weight: 59 kg

DRUGS (4)
  1. TARIVID                            /00731801/ [Concomitant]
     Active Substance: OFLOXACIN
     Indication: INFECTION PROPHYLAXIS
     Dosage: 16 DROP, DAILY
     Route: 065
     Dates: start: 20170913
  2. SOLIRIS [Suspect]
     Active Substance: ECULIZUMAB
     Dosage: 900 MG, DAILY
     Route: 042
     Dates: start: 20150219
  3. SOLIRIS [Suspect]
     Active Substance: ECULIZUMAB
     Indication: PAROXYSMAL NOCTURNAL HAEMOGLOBINURIA
     Dosage: 600 MG, UNK
     Route: 042
     Dates: start: 20150122, end: 20150212
  4. CEFDITOREN PIVOXIL. [Concomitant]
     Active Substance: CEFDITOREN PIVOXIL
     Indication: INFECTION PROPHYLAXIS
     Dosage: 300 MG, DAILY
     Route: 065
     Dates: start: 20170912, end: 20170915

REACTIONS (4)
  - Tympanic membrane perforation [Recovered/Resolved]
  - Rhinitis allergic [Recovered/Resolved]
  - Musculoskeletal stiffness [Recovered/Resolved]
  - Gastroenteritis [Recovered/Resolved]

NARRATIVE: CASE EVENT DATE: 20160705
